FAERS Safety Report 7793507-0 (Version None)
Quarter: 2011Q4

REPORT INFORMATION
  Report Type: 
  Country: None (occurrence: None)
  Receive Date: 20111003
  Receipt Date: 20110922
  Transmission Date: 20120403
  Serious: Yes (Hospitalization)
  Sender: FDA-Public Use
  Company Number: JP-AMGEN-JPNCT2011044805

PATIENT
  Age: 73 Year
  Sex: Male
  Weight: 49 kg

DRUGS (4)
  1. PROPADERM [Concomitant]
     Dosage: UNK
     Route: 062
  2. HIRUDOID SOFT [Concomitant]
     Dosage: UNK
     Route: 062
  3. PANITUMUMAB [Suspect]
     Indication: COLORECTAL CANCER
     Dosage: 6 MG/KG, Q2WK
     Route: 041
     Dates: start: 20101013, end: 20110107
  4. FULMETA [Concomitant]
     Dosage: UNK
     Route: 062

REACTIONS (8)
  - PARALYSIS [None]
  - HYPOCALCAEMIA [None]
  - ERYTHEMA [None]
  - HYPOMAGNESAEMIA [None]
  - RHABDOMYOLYSIS [None]
  - HYPOKALAEMIA [None]
  - SEBORRHOEIC DERMATITIS [None]
  - DERMATITIS ACNEIFORM [None]
